FAERS Safety Report 17188533 (Version 1)
Quarter: 2019Q4

REPORT INFORMATION
  Report Type: Other
  Country: US (occurrence: US)
  Receive Date: 20191222
  Receipt Date: 20191222
  Transmission Date: 20200122
  Serious: No
  Sender: FDA-Public Use
  Company Number: US-ACORDA-ACO_161396_2019

PATIENT
  Sex: Male

DRUGS (3)
  1. INBRIJA [Suspect]
     Active Substance: LEVODOPA
     Indication: ON AND OFF PHENOMENON
  2. SINEMET [Concomitant]
     Active Substance: CARBIDOPA\LEVODOPA
     Indication: PRODUCT USED FOR UNKNOWN INDICATION
     Dosage: UNK, QID
     Route: 065
  3. INBRIJA [Suspect]
     Active Substance: LEVODOPA
     Indication: PARKINSON^S DISEASE
     Dosage: 84 MILLIGRAM, PRN
     Dates: start: 201909

REACTIONS (9)
  - Erythema [Unknown]
  - Somnolence [Unknown]
  - Device difficult to use [Unknown]
  - Aggression [Unknown]
  - Hostility [Unknown]
  - Dyspnoea [Unknown]
  - Agitation [Unknown]
  - Abnormal behaviour [Unknown]
  - Confusional state [Unknown]
